FAERS Safety Report 9351778 (Version 1)
Quarter: 2013Q2

REPORT INFORMATION
  Report Type: Spontaneous
  Country: BE (occurrence: BE)
  Receive Date: 20130617
  Receipt Date: 20130617
  Transmission Date: 20140414
  Serious: Yes (Life-Threatening, Hospitalization)
  Sender: FDA-Public Use
  Company Number: BE-B.I. PHARMACEUTICALS,INC./RIDGEFIELD-2013-BL-00298BL

PATIENT
  Age: 80 Year
  Sex: Male

DRUGS (1)
  1. TRAJENTA [Suspect]

REACTIONS (1)
  - Renal failure [Unknown]
